FAERS Safety Report 4728585-6 (Version None)
Quarter: 2005Q3

REPORT INFORMATION
  Report Type: 
  Country: None (occurrence: None)
  Receive Date: 20050727
  Receipt Date: 20050715
  Transmission Date: 20060218
  Serious: Yes (Other)
  Sender: FDA-Public Use
  Company Number: 2005103652

PATIENT
  Age: 62 Year
  Sex: Male

DRUGS (3)
  1. NORVASC [Suspect]
     Indication: ILL-DEFINED DISORDER
     Dosage: 10 MG (5 MG, 2 IN 1 D); ORAL
     Route: 048
     Dates: start: 20040101
  2. PLAVIX [Concomitant]
  3. ASPIRIN [Concomitant]

REACTIONS (1)
  - NEOPLASM MALIGNANT [None]
